FAERS Safety Report 21412549 (Version 1)
Quarter: 2022Q4

REPORT INFORMATION
  Report Type: Spontaneous
  Country: US (occurrence: US)
  Receive Date: 20221005
  Receipt Date: 20221005
  Transmission Date: 20230113
  Serious: No
  Sender: FDA-Public Use
  Company Number: US-INTRA-CELLULAR THERAPIES, INC.-2022ICT00820

PATIENT
  Age: 34 Year
  Sex: Female

DRUGS (3)
  1. CAPLYTA [Suspect]
     Active Substance: LUMATEPERONE
     Indication: Bipolar disorder
     Dosage: UNK
     Dates: start: 20220608, end: 20220629
  2. CAPLYTA [Suspect]
     Active Substance: LUMATEPERONE
     Indication: Psychotic symptom
  3. SEROQUEL [Concomitant]
     Active Substance: QUETIAPINE FUMARATE
     Dosage: ^CROSS TITRATING^
     Dates: start: 202206

REACTIONS (2)
  - Trismus [Unknown]
  - Dysphagia [Unknown]

NARRATIVE: CASE EVENT DATE: 20220601
